FAERS Safety Report 11935093 (Version 1)
Quarter: 2016Q1

REPORT INFORMATION
  Report Type: Report from Study
  Country: TR (occurrence: TR)
  Receive Date: 20160121
  Receipt Date: 20160121
  Transmission Date: 20160526
  Serious: Yes (Death, Other)
  Sender: FDA-Public Use
  Company Number: TR-ROCHE-1693925

PATIENT
  Age: 62 Year
  Sex: Male
  Weight: 75 kg

DRUGS (3)
  1. KORDEXA [Concomitant]
     Active Substance: DEXAMETHASONE
     Indication: METASTASES TO CENTRAL NERVOUS SYSTEM
     Route: 048
     Dates: start: 20150915
  2. COBIMETINIB [Suspect]
     Active Substance: COBIMETINIB
     Indication: MALIGNANT MELANOMA
     Route: 048
     Dates: start: 20151103, end: 20151222
  3. VEMURAFENIB [Suspect]
     Active Substance: VEMURAFENIB
     Indication: MALIGNANT MELANOMA
     Route: 048
     Dates: start: 20151013, end: 20151230

REACTIONS (2)
  - Syncope [Recovered/Resolved]
  - Respiratory arrest [Fatal]

NARRATIVE: CASE EVENT DATE: 20151230
